FAERS Safety Report 23168003 (Version 1)
Quarter: 2023Q4

REPORT INFORMATION
  Report Type: Spontaneous
  Country: JP (occurrence: JP)
  Receive Date: 20231109
  Receipt Date: 20231109
  Transmission Date: 20240109
  Serious: Yes (Hospitalization, Other)
  Sender: FDA-Public Use
  Company Number: JP-MSD-2310JPN004256J

PATIENT
  Age: 67 Year
  Sex: Male

DRUGS (4)
  1. BELSOMRA [Interacting]
     Active Substance: SUVOREXANT
     Indication: Insomnia
     Dosage: 20 MILLIGRAM/DAY
     Route: 048
     Dates: end: 20230825
  2. QUETIAPINE FUMARATE [Interacting]
     Active Substance: QUETIAPINE FUMARATE
     Indication: Schizophrenia
     Dosage: 300 MILLIGRAM/DAY
     Route: 048
  3. ENSITRELVIR FUMARATE [Interacting]
     Active Substance: ENSITRELVIR FUMARATE
     Indication: COVID-19
     Dosage: 375 MILLIGRAM/DAY
     Route: 048
     Dates: start: 20230824, end: 20230824
  4. ENSITRELVIR FUMARATE [Interacting]
     Active Substance: ENSITRELVIR FUMARATE
     Dosage: 125 MILLIGRAM/DAY
     Route: 048
     Dates: start: 20230825, end: 20230825

REACTIONS (4)
  - Akinesia [Recovered/Resolved]
  - COVID-19 [Recovering/Resolving]
  - Drug interaction [Recovered/Resolved]
  - Contraindicated product administered [Unknown]

NARRATIVE: CASE EVENT DATE: 20230824
